FAERS Safety Report 8163627-X (Version None)
Quarter: 2012Q1

REPORT INFORMATION
  Report Type: 
  Country: None (occurrence: None)
  Receive Date: 20120224
  Receipt Date: 20120220
  Transmission Date: 20120608
  Serious: Yes (Hospitalization)
  Sender: FDA-Public Use
  Company Number: FR-PFIZER INC-2012005449

PATIENT
  Age: 68 Year
  Sex: Female

DRUGS (2)
  1. CLINDAMYCIN HCL [Suspect]
     Indication: ANTIBIOTIC THERAPY
  2. CLINDAMYCIN HCL [Suspect]
     Indication: DENTAL CARE
     Dosage: 1 DF, 3X/DAY
     Route: 048
     Dates: start: 20111215, end: 20111222

REACTIONS (7)
  - PRURITUS [None]
  - EOSINOPHILIA [None]
  - DRUG RASH WITH EOSINOPHILIA AND SYSTEMIC SYMPTOMS [None]
  - URTICARIA [None]
  - FACE OEDEMA [None]
  - RASH MACULO-PAPULAR [None]
  - CYTOLYTIC HEPATITIS [None]
